FAERS Safety Report 5099194-7 (Version None)
Quarter: 2006Q3

REPORT INFORMATION
  Report Type: 
  Country: None (occurrence: None)
  Receive Date: 20060728
  Receipt Date: 20060519
  Transmission Date: 20061208
  Serious: No
  Sender: FDA-Public Use
  Company Number: COT_0535_2006

PATIENT
  Age: 70 Year
  Sex: Female
  Weight: 73.4827 kg

DRUGS (8)
  1. VENTAVIS [Suspect]
     Indication: PULMONARY HYPERTENSION
     Dosage: 5 MCG 6XD IH
     Dates: start: 20060201
  2. TRACLEER [Concomitant]
  3. ALDACTONE [Concomitant]
  4. TYLENOL [Concomitant]
  5. LIPITOR [Concomitant]
  6. COUMADIN [Concomitant]
  7. CARDIZEM [Concomitant]
  8. OXYGEN [Concomitant]

REACTIONS (5)
  - DYSPNOEA [None]
  - FATIGUE [None]
  - FLUSHING [None]
  - HEADACHE [None]
  - THROAT IRRITATION [None]
